FAERS Safety Report 7226660-8 (Version None)
Quarter: 2011Q1

REPORT INFORMATION
  Report Type: 
  Country: None (occurrence: None)
  Receive Date: 20110114
  Receipt Date: 20110111
  Transmission Date: 20110831
  Serious: Yes (Hospitalization, Other)
  Sender: FDA-Public Use
  Company Number: BR-ABBOTT-10P-020-0687477-00

PATIENT
  Sex: Male

DRUGS (1)
  1. HUMIRA [Suspect]
     Indication: CROHN'S DISEASE
     Dates: start: 20090624

REACTIONS (5)
  - INTESTINAL RESECTION [None]
  - ABDOMINAL PAIN [None]
  - HEPATIC CYST [None]
  - ANAEMIA [None]
  - ABSCESS [None]
